FAERS Safety Report 5939857-1 (Version None)
Quarter: 2008Q4

REPORT INFORMATION
  Report Type: 
  Country: None (occurrence: None)
  Receive Date: 20081104
  Receipt Date: 20081027
  Transmission Date: 20090506
  Serious: Yes (Hospitalization)
  Sender: FDA-Public Use
  Company Number: AT-JNJFOC-20081005023

PATIENT
  Age: 40 Year
  Sex: Female
  Weight: 77 kg

DRUGS (10)
  1. HALDOL [Suspect]
     Indication: ABNORMAL BEHAVIOUR
     Route: 048
  2. RISPERDAL [Suspect]
     Indication: DRUG USE FOR UNKNOWN INDICATION
     Route: 065
  3. CIPRALEX [Suspect]
     Indication: DRUG USE FOR UNKNOWN INDICATION
     Route: 065
  4. ZYPREXA [Suspect]
     Route: 065
  5. ZYPREXA [Suspect]
     Indication: DRUG USE FOR UNKNOWN INDICATION
     Route: 065
  6. SEROQUEL [Suspect]
     Indication: DRUG USE FOR UNKNOWN INDICATION
     Route: 065
  7. EFFORTIL [Concomitant]
     Route: 048
  8. EUTHYROX [Concomitant]
     Route: 065
  9. DEPAKENE [Concomitant]
     Route: 065
  10. FERRO-GRADUMET [Concomitant]
     Route: 065

REACTIONS (2)
  - HOSPITALISATION [None]
  - HYPERPROLACTINAEMIA [None]
